FAERS Safety Report 16243570 (Version 16)
Quarter: 2021Q1

REPORT INFORMATION
  Report Type: Spontaneous
  Country: US (occurrence: US)
  Receive Date: 20190426
  Receipt Date: 20210128
  Transmission Date: 20210419
  Serious: Yes (Hospitalization, Other)
  Sender: FDA-Public Use
  Company Number: US-PFIZER INC-2019168642

PATIENT
  Age: 80 Year
  Sex: Female
  Weight: 73 kg

DRUGS (31)
  1. LOVASTATIN. [Concomitant]
     Active Substance: LOVASTATIN
     Indication: CARDIAC DISORDER
  2. HCTZ [Concomitant]
     Active Substance: HYDROCHLOROTHIAZIDE
     Indication: CARDIAC DISORDER
     Dosage: 10 MG, DAILY
     Dates: start: 1995
  3. METOPROLOL [METOPROLOL SUCCINATE] [Concomitant]
     Dosage: UNK
  4. VALACYCLOVIR HCL [Concomitant]
     Active Substance: VALACYCLOVIR HYDROCHLORIDE
     Dosage: 500 MG, DAILY
  5. PREMARIN [Suspect]
     Active Substance: ESTROGENS, CONJUGATED
     Indication: MENOPAUSAL SYMPTOMS
  6. COLLAGEN [Concomitant]
     Active Substance: COLLAGEN
     Dosage: UNK
     Dates: start: 1998
  7. CLONIDINE. [Concomitant]
     Active Substance: CLONIDINE
     Dosage: 0.1 MG, DAILY
     Dates: start: 1998
  8. HCTZ [Concomitant]
     Active Substance: HYDROCHLOROTHIAZIDE
     Dosage: UNK
  9. GLUCOSAMINE [Concomitant]
     Active Substance: GLUCOSAMINE
     Dosage: UNK
  10. HYDROXYCHLOROQUINE [Concomitant]
     Active Substance: HYDROXYCHLOROQUINE
     Indication: SYSTEMIC LUPUS ERYTHEMATOSUS
     Dosage: 200 MG, DAILY
  11. GLUCOSAMINE AND CHONDROITIN [Concomitant]
     Active Substance: CHONDROITIN SULFATE (BOVINE)\GLUCOSAMINE HYDROCHLORIDE
     Dosage: UNK
  12. VITAMIN B [Concomitant]
     Active Substance: VITAMIN B
     Dosage: UNK
  13. COLLAGEN [Concomitant]
     Active Substance: COLLAGEN
     Dosage: 1000 MG, UNK
  14. LOVASTATIN. [Concomitant]
     Active Substance: LOVASTATIN
     Indication: ANTICOAGULANT THERAPY
     Dosage: 40 MG, DAILY
     Dates: start: 1995
  15. METOPROLOL [METOPROLOL SUCCINATE] [Concomitant]
     Indication: CARDIAC DISORDER
     Dosage: 100 MG, DAILY
     Dates: start: 1995
  16. HYDROXYCHLOROQUINE [Concomitant]
     Active Substance: HYDROXYCHLOROQUINE
     Dosage: UNK
  17. VITAMIN A [RETINOL ACETATE] [Concomitant]
     Dosage: UNK
  18. PREMARIN [Suspect]
     Active Substance: ESTROGENS, CONJUGATED
     Indication: HOT FLUSH
     Dosage: UNK
     Dates: end: 201806
  19. LOVASTATIN. [Concomitant]
     Active Substance: LOVASTATIN
     Indication: BLOOD DISORDER
     Dosage: UNK
     Dates: start: 1990
  20. LISINOPRIL. [Concomitant]
     Active Substance: LISINOPRIL
     Indication: CARDIAC DISORDER
     Dosage: 40 MG, DAILY
     Dates: start: 1995
  21. LISINOPRIL. [Concomitant]
     Active Substance: LISINOPRIL
     Dosage: UNK
  22. PREMARIN [Suspect]
     Active Substance: ESTROGENS, CONJUGATED
     Indication: CERVIX NEOPLASM
     Dosage: 1.75 MG, ONCE DAILY
     Route: 048
  23. VITAMIN C WITH ROSE HIPS [Concomitant]
     Dosage: UNK
     Dates: start: 1990
  24. COLLAGEN [Concomitant]
     Active Substance: COLLAGEN
     Dosage: 500 MG, UNK
  25. VALACYCLOVIR HCL [Concomitant]
     Active Substance: VALACYCLOVIR HYDROCHLORIDE
     Dosage: UNK
  26. COLLAGEN [Concomitant]
     Active Substance: COLLAGEN
     Dosage: 1000 ML, DAILY
  27. GLUCOSAMINE [Concomitant]
     Active Substance: GLUCOSAMINE
     Dosage: 100 MG, DAILY
     Dates: start: 1995
  28. CALCIUM [Concomitant]
     Active Substance: CALCIUM
     Dosage: UNK
  29. PREMARIN [Suspect]
     Active Substance: ESTROGENS, CONJUGATED
     Indication: MENOPAUSE
     Dosage: 0.03 MG, DAILY
     Route: 048
     Dates: start: 1956
  30. PREMARIN [Suspect]
     Active Substance: ESTROGENS, CONJUGATED
     Indication: HORMONE REPLACEMENT THERAPY
     Dosage: 0.3 MG, DAILY
     Route: 048
  31. CLONIDINE. [Concomitant]
     Active Substance: CLONIDINE
     Indication: BLOOD DISORDER
     Dosage: UNK
     Dates: start: 1980

REACTIONS (9)
  - Ovarian cyst [Recovered/Resolved]
  - Therapeutic response unexpected [Recovered/Resolved]
  - Sciatica [Recovered/Resolved]
  - Balance disorder [Recovered/Resolved]
  - Pain [Recovered/Resolved]
  - Balance disorder [Unknown]
  - Hair growth abnormal [Recovered/Resolved]
  - Product prescribing error [Unknown]
  - Movement disorder [Unknown]

NARRATIVE: CASE EVENT DATE: 2016
